FAERS Safety Report 5261210-7 (Version None)
Quarter: 2007Q1

REPORT INFORMATION
  Report Type: 
  Country: None (occurrence: None)
  Receive Date: 20070309
  Receipt Date: 20070227
  Transmission Date: 20070707
  Serious: Yes (Hospitalization, Other)
  Sender: FDA-Public Use
  Company Number: US-PFIZER INC-2007015630

PATIENT
  Sex: Female
  Weight: 45 kg

DRUGS (7)
  1. PROCARDIA [Suspect]
     Indication: HYPERTENSION
     Route: 048
  2. CLEVIPREX [Suspect]
     Route: 042
     Dates: start: 20070126, end: 20070127
  3. LOPRESSOR [Suspect]
     Indication: HYPERTENSION
     Route: 048
  4. LOPRESSOR [Suspect]
     Route: 048
  5. LOPRESSOR [Suspect]
     Route: 048
  6. PROTONIX [Concomitant]
  7. LIPITOR [Concomitant]

REACTIONS (2)
  - APNOEA [None]
  - SYNCOPE [None]
